FAERS Safety Report 7286170-9 (Version None)
Quarter: 2011Q1

REPORT INFORMATION
  Report Type: 
  Country: None (occurrence: None)
  Receive Date: 20110210
  Receipt Date: 20110118
  Transmission Date: 20110831
  Serious: No
  Sender: FDA-Public Use
  Company Number: US-BAYER-2011-006457

PATIENT
  Sex: Female

DRUGS (2)
  1. ALEVE (CAPLET) [Suspect]
  2. MOTRIN [Concomitant]
     Dosage: UNK
     Dates: start: 20110118

REACTIONS (3)
  - HYPERSENSITIVITY [None]
  - EYE SWELLING [None]
  - LIP SWELLING [None]
